FAERS Safety Report 5087848-8 (Version None)
Quarter: 2006Q3

REPORT INFORMATION
  Report Type: 
  Country: None (occurrence: None)
  Receive Date: 20060821
  Receipt Date: 20060821
  Transmission Date: 20061208
  Serious: Yes (Hospitalization)
  Sender: FDA-Public Use
  Company Number: None

PATIENT
  Sex: Female
  Weight: 53.6 kg

DRUGS (7)
  1. CISPLATIN [Suspect]
     Dosage: 76 MG
  2. TAXOL [Suspect]
     Dosage: 210 MG
  3. ALOXI [Concomitant]
  4. BENADRYL [Concomitant]
  5. DECADRON [Concomitant]
  6. MORPHINE [Concomitant]
  7. PEPCID [Concomitant]

REACTIONS (5)
  - HYPOALBUMINAEMIA [None]
  - MULTI-ORGAN FAILURE [None]
  - PULMONARY EMBOLISM [None]
  - SEPTIC SHOCK [None]
  - SMALL INTESTINAL OBSTRUCTION [None]
